FAERS Safety Report 13342666 (Version 1)
Quarter: 2017Q1

REPORT INFORMATION
  Report Type: Spontaneous
  Country: US (occurrence: US)
  Receive Date: 20170314
  Receipt Date: 20170314
  Transmission Date: 20170428
  Serious: Yes (Other)
  Sender: FDA-Public Use
  Company Number: None

PATIENT
  Age: 58 Year
  Sex: Male
  Weight: 90.8 kg

DRUGS (24)
  1. LASIX [Concomitant]
     Active Substance: FUROSEMIDE
  2. WELLBUTRIN SR [Concomitant]
     Active Substance: BUPROPION HYDROCHLORIDE
  3. CORDARONE [Concomitant]
     Active Substance: AMIODARONE HYDROCHLORIDE
  4. FERREX [Concomitant]
  5. CENTURY MEN 1-DAY [Concomitant]
  6. XARELTO [Concomitant]
     Active Substance: RIVAROXABAN
  7. ZOCOR [Concomitant]
     Active Substance: SIMVASTATIN
  8. XANAX [Concomitant]
     Active Substance: ALPRAZOLAM
  9. SAW PALMETTO EXTRACT BERRY [Concomitant]
  10. GINKGO BILOBA EXTRACT LEAF [Concomitant]
  11. TOPROL XL [Concomitant]
     Active Substance: METOPROLOL SUCCINATE
  12. CELEXA [Concomitant]
     Active Substance: CITALOPRAM HYDROBROMIDE
  13. PRINIVIL [Concomitant]
     Active Substance: LISINOPRIL
  14. BIOPERINE [Concomitant]
  15. ASIAN RED GINSENG EXTRACT ROOT [Concomitant]
  16. NORCO [Concomitant]
     Active Substance: ACETAMINOPHEN\HYDROCODONE BITARTRATE
  17. PROPRETARY BLEND EQUIVALENT [Concomitant]
  18. PURPLE RHINO MALE ENHANCEMENT SOLUTION POWER FORMULA [Suspect]
     Active Substance: DIETARY SUPPLEMENT
     Indication: ERECTILE DYSFUNCTION
     Route: 048
     Dates: start: 20161230, end: 20170310
  19. BARBITURATE [Suspect]
     Active Substance: UNSPECIFIED INGREDIENT
  20. SINGULAIR [Concomitant]
     Active Substance: MONTELUKAST SODIUM
  21. NEXIUM [Concomitant]
     Active Substance: ESOMEPRAZOLE MAGNESIUM
  22. L-ARGININE HYDROCHLORIDE [Concomitant]
  23. MUIRA PUAMA EXTRACT BERRY [Concomitant]
  24. HORNY GOAT WEED EXTRACT LEAF [Concomitant]

REACTIONS (2)
  - Therapy cessation [None]
  - Barbiturates positive [None]

NARRATIVE: CASE EVENT DATE: 20170301
